FAERS Safety Report 24410837 (Version 2)
Quarter: 2025Q1

REPORT INFORMATION
  Report Type: Report from Study
  Country: US (occurrence: US)
  Receive Date: 20241008
  Receipt Date: 20250210
  Transmission Date: 20250409
  Serious: Yes (Other)
  Sender: SUNOVION
  Company Number: US-MYOVANT SCIENCES GMBH-2024MYSCI0601208

PATIENT

DRUGS (4)
  1. ORGOVYX [Suspect]
     Active Substance: RELUGOLIX
     Indication: Prostate cancer
     Dosage: 360 MILLIGRAM, ONE TIME DOSE
     Route: 048
     Dates: start: 20240625, end: 20240625
  2. ORGOVYX [Suspect]
     Active Substance: RELUGOLIX
     Dosage: 120 MILLIGRAM, QD
     Route: 048
     Dates: start: 20240626
  3. ORGOVYX [Suspect]
     Active Substance: RELUGOLIX
     Route: 048
  4. ORGOVYX [Suspect]
     Active Substance: RELUGOLIX
     Route: 048

REACTIONS (16)
  - Urinary bladder haemorrhage [Unknown]
  - Cystitis radiation [Unknown]
  - Blood iron decreased [Unknown]
  - Penile pain [Unknown]
  - Urinary tract infection [Unknown]
  - Alopecia [Unknown]
  - Feeling abnormal [Unknown]
  - Appetite disorder [Unknown]
  - Haemoglobin decreased [Unknown]
  - Myalgia [Unknown]
  - Fatigue [Unknown]
  - Hot flush [Unknown]
  - Asthenia [Unknown]
  - Gynaecomastia [Unknown]
  - Back pain [Unknown]
  - Arthralgia [Unknown]
